FAERS Safety Report 15117399 (Version 1)
Quarter: 2018Q3

REPORT INFORMATION
  Report Type: Spontaneous
  Country: IT (occurrence: IT)
  Receive Date: 20180706
  Receipt Date: 20180706
  Transmission Date: 20181010
  Serious: Yes (Other)
  Sender: FDA-Public Use
  Company Number: IT-TEVA-2018-IT-921145

PATIENT
  Age: 55 Year
  Sex: Female
  Weight: 51 kg

DRUGS (4)
  1. CARBOPLATIN. [Suspect]
     Active Substance: CARBOPLATIN
     Indication: BREAST CANCER
     Route: 042
     Dates: start: 20180503, end: 20180509
  2. GEMCITABINE [Suspect]
     Active Substance: GEMCITABINE\GEMCITABINE HYDROCHLORIDE
     Indication: BREAST CANCER
     Route: 042
     Dates: start: 20180503, end: 20180509
  3. TAD (GLUTATIONE SALE SODICO) 600 MG/4 ML POLVERE E SOLVENTE PER SOLUZI [Concomitant]
  4. URSOBIL [Concomitant]
     Active Substance: URSODIOL
     Route: 048

REACTIONS (2)
  - Thrombocytopenia [Unknown]
  - Hypertransaminasaemia [Unknown]

NARRATIVE: CASE EVENT DATE: 20180509
